FAERS Safety Report 8508483-2 (Version None)
Quarter: 2012Q3

REPORT INFORMATION
  Report Type: 
  Country: None (occurrence: None)
  Receive Date: 20120713
  Receipt Date: 20120703
  Transmission Date: 20120928
  Serious: No
  Sender: FDA-Public Use
  Company Number: US-009507513-1207USA002510

PATIENT

DRUGS (1)
  1. ZETIA [Suspect]

REACTIONS (1)
  - MYALGIA [None]
